FAERS Safety Report 18783298 (Version 1)
Quarter: 2021Q1

REPORT INFORMATION
  Report Type: Other
  Country: IT (occurrence: IT)
  Receive Date: 20210125
  Receipt Date: 20210125
  Transmission Date: 20210419
  Serious: Yes (Hospitalization)
  Sender: FDA-Public Use
  Company Number: IT-MACLEODS PHARMACEUTICALS US LTD-MAC2021029849

PATIENT

DRUGS (1)
  1. LEVOFLOXACIN 500 MG TABLET [Suspect]
     Active Substance: LEVOFLOXACIN
     Indication: URINARY TRACT INFECTION
     Dosage: 500 MILLIGRAM, QD
     Route: 048
     Dates: start: 20201229, end: 20201230

REACTIONS (1)
  - Chorea [Recovered/Resolved]

NARRATIVE: CASE EVENT DATE: 20201229
